FAERS Safety Report 10670422 (Version 1)
Quarter: 2014Q4

REPORT INFORMATION
  Report Type: Spontaneous
  Country: US (occurrence: US)
  Receive Date: 20141223
  Receipt Date: 20141223
  Transmission Date: 20150529
  Serious: Yes (Hospitalization)
  Sender: FDA-Public Use
  Company Number: US-BAYER-2014-185114

PATIENT
  Age: 30 Year
  Sex: Female
  Weight: 86.17 kg

DRUGS (6)
  1. DILANTIN [Concomitant]
     Active Substance: PHENYTOIN
     Dosage: 300 MG, UNK
     Route: 048
     Dates: start: 20030712, end: 20030721
  2. HUMIBID [Concomitant]
     Active Substance: GUAIFENESIN
     Dosage: 600 MG, UNK
     Route: 048
     Dates: start: 20030716, end: 20030721
  3. YASMIN [Suspect]
     Active Substance: DROSPIRENONE\ETHINYL ESTRADIOL
     Route: 048
  4. LEVAQUIN [Concomitant]
     Active Substance: LEVOFLOXACIN
     Dosage: 500 MG, UNK
     Route: 048
     Dates: start: 20030716, end: 20030721
  5. LORTAB [Concomitant]
     Active Substance: ACETAMINOPHEN\HYDROCODONE BITARTRATE
     Dosage: UNK
     Route: 048
     Dates: start: 20030712
  6. BEXTRA [Concomitant]
     Active Substance: VALDECOXIB
     Dosage: 10 MG, UNK
     Route: 048
     Dates: start: 20030716, end: 20030721

REACTIONS (5)
  - Haemorrhagic stroke [None]
  - Thrombophlebitis superficial [None]
  - Deep vein thrombosis [None]
  - Pulmonary embolism [None]
  - Pelvic venous thrombosis [None]

NARRATIVE: CASE EVENT DATE: 20030708
